FAERS Safety Report 23133919 (Version 2)
Quarter: 2024Q3

REPORT INFORMATION
  Report Type: Spontaneous
  Country: US (occurrence: US)
  Receive Date: 20231101
  Receipt Date: 20240930
  Transmission Date: 20241017
  Serious: No
  Sender: GLENMARK
  Company Number: US-GLENMARK PHARMACEUTICALS-2023GMK080107

PATIENT

DRUGS (1)
  1. NITROGLYCERIN [Suspect]
     Active Substance: NITROGLYCERIN
     Indication: Chest pain
     Dosage: UNK
     Route: 060
     Dates: start: 20230313

REACTIONS (5)
  - Wrong technique in product usage process [Unknown]
  - Product storage error [Unknown]
  - Product use in unapproved indication [Unknown]
  - Product solubility abnormal [Unknown]
  - Paraesthesia [Unknown]

NARRATIVE: CASE EVENT DATE: 20230301
